FAERS Safety Report 10027445 (Version 2)
Quarter: 2014Q2

REPORT INFORMATION
  Report Type: Spontaneous
  Country: US (occurrence: US)
  Receive Date: 20140321
  Receipt Date: 20140411
  Transmission Date: 20141212
  Serious: No
  Sender: FDA-Public Use
  Company Number: US-PFIZER INC-2014079658

PATIENT
  Age: 42 Year
  Sex: Male

DRUGS (3)
  1. FLAGYL [Suspect]
     Dosage: UNK
  2. ZOFRAN [Suspect]
     Dosage: UNK
  3. AMBIEN [Suspect]
     Dosage: UNK

REACTIONS (1)
  - Drug hypersensitivity [Unknown]
